FAERS Safety Report 8346535-0 (Version None)
Quarter: 2012Q1

REPORT INFORMATION
  Report Type: 
  Country: None (occurrence: None)
  Receive Date: 20120315
  Receipt Date: 20110524
  Transmission Date: 20120608
  Serious: No
  Sender: FDA-Public Use
  Company Number: PHHY2011US39700

PATIENT
  Age: 29 Year
  Sex: Female

DRUGS (6)
  1. VITAMIN D [Concomitant]
  2. GILENYA [Suspect]
     Indication: MULTIPLE SCLEROSIS
     Dosage: 0.5 MG, DAILY, ORAL
     Route: 048
     Dates: start: 20110502
  3. NASONEX [Concomitant]
  4. FISHSIL [Concomitant]
  5. VICODIN [Concomitant]
  6. VITAMIN E [Concomitant]

REACTIONS (1)
  - INSOMNIA [None]
